FAERS Safety Report 7090166-X (Version None)
Quarter: 2010Q4

REPORT INFORMATION
  Report Type: 
  Country: None (occurrence: None)
  Receive Date: 20101105
  Receipt Date: 20101105
  Transmission Date: 20110411
  Serious: Yes (Hospitalization)
  Sender: FDA-Public Use
  Company Number: None

PATIENT
  Sex: Male
  Weight: 63.9572 kg

DRUGS (7)
  1. LORAZEPAM [Suspect]
     Indication: SEDATION
     Dosage: 4 MG ONCE PO
     Route: 048
     Dates: start: 20101008
  2. LEVETIRACETAM [Concomitant]
  3. VIT D [Concomitant]
  4. LEVOTHYROXINE SODIUM [Concomitant]
  5. VALPROIC ACID [Concomitant]
  6. ASPIRIN [Concomitant]
  7. CALCIUM CARBONATE [Concomitant]

REACTIONS (4)
  - BRADYCARDIA [None]
  - HYPOTENSION [None]
  - HYPOTHERMIA [None]
  - SOMNOLENCE [None]
